FAERS Safety Report 13627379 (Version 2)
Quarter: 2017Q2

REPORT INFORMATION
  Report Type: Spontaneous
  Country: FR (occurrence: FR)
  Receive Date: 20170607
  Receipt Date: 20170613
  Transmission Date: 20170830
  Serious: Yes (Death, Other)
  Sender: FDA-Public Use
  Company Number: FR-SHIRE-FR201712207

PATIENT
  Sex: Male

DRUGS (4)
  1. TPN [Concomitant]
     Active Substance: AMINO ACIDS\DEXTROSE\ELECTROLYTES NOS\SOYBEAN OIL
     Indication: SHORT-BOWEL SYNDROME
  2. TPN [Concomitant]
     Active Substance: AMINO ACIDS\DEXTROSE\ELECTROLYTES NOS\SOYBEAN OIL
     Indication: PARENTERAL NUTRITION
     Dosage: UNK, UNKNOWN
     Route: 065
     Dates: start: 1993
  3. REVESTIVE [Suspect]
     Active Substance: TEDUGLUTIDE
     Indication: SHORT-BOWEL SYNDROME
     Dosage: 0.05 MG/KG, UNKNOWN
     Route: 058
     Dates: start: 20160830, end: 20170516
  4. REVESTIVE [Suspect]
     Active Substance: TEDUGLUTIDE
     Dosage: 0.05 MG/KG, UNKNOWN
     Route: 058
     Dates: start: 20151126, end: 20160623

REACTIONS (2)
  - Cardiac disorder [Fatal]
  - Hepatic failure [Fatal]
